FAERS Safety Report 4563093-7 (Version None)
Quarter: 2005Q1

REPORT INFORMATION
  Report Type: 
  Country: None (occurrence: None)
  Receive Date: 20050125
  Receipt Date: 20050117
  Transmission Date: 20050727
  Serious: Yes (Hospitalization)
  Sender: FDA-Public Use
  Company Number: Z002-302-6-0004

PATIENT
  Age: 67 Year
  Sex: Female

DRUGS (18)
  1. ZONEGRAN [Suspect]
     Indication: PARKINSON'S DISEASE
     Dosage: 25 MG, 1 IN 1 D, ORAL
     Route: 048
     Dates: start: 20040619, end: 20040910
  2. PERMAX [Concomitant]
  3. AMOXAPINE [Concomitant]
  4. MEILAX (ETHYL LOFLAZEPATE) [Concomitant]
  5. ROHYPNOL (FLUNITRAZEPAM) [Concomitant]
  6. LUDIOMIL [Concomitant]
  7. CLINORIL [Concomitant]
  8. PROTECADIN [Concomitant]
  9. BENET (RISEDRONATE SODIUM) [Concomitant]
  10. PURSENNID (SENNA LEAF) [Concomitant]
  11. PANTOSIN (PANTETHINE) [Concomitant]
  12. RHUBARB [Concomitant]
  13. LAXOBERON (SODIUM PICOSULFATE) [Concomitant]
  14. GLYCERIN (GLYCEROL) [Concomitant]
  15. MAGNESIUM OXIDE (MAGNESIUM OXIDE) [Concomitant]
  16. FLOMOX (CEFCAPENE PIVOXIL HYDROCHLORIDE) [Concomitant]
  17. PL [Concomitant]
  18. RESPLEN (EPRAZINONE HYDROCHLORIDE) [Concomitant]

REACTIONS (6)
  - COMPRESSION FRACTURE [None]
  - CONSTIPATION [None]
  - LARYNGOPHARYNGITIS [None]
  - LUMBAR VERTEBRAL FRACTURE [None]
  - PNEUMONIA [None]
  - SOMNOLENCE [None]
